FAERS Safety Report 6016374-4 (Version None)
Quarter: 2008Q4

REPORT INFORMATION
  Report Type: 
  Country: None (occurrence: None)
  Receive Date: 20081217
  Receipt Date: 20081027
  Transmission Date: 20090506
  Serious: Yes (Other)
  Sender: FDA-Public Use
  Company Number: US-WYE-H06582608

PATIENT
  Age: 67 Year
  Sex: Female
  Weight: 50.85 kg

DRUGS (6)
  1. TORISEL [Suspect]
     Indication: METASTATIC RENAL CELL CARCINOMA
     Dosage: 25 MG 1X PER 1 WK, INTRAVENOUS
     Route: 042
     Dates: start: 20071113, end: 20071119
  2. ALEVE (CAPLET) [Concomitant]
  3. ZOFRAN [Concomitant]
  4. ALBUTEROL [Concomitant]
  5. BUSPIRONE HCL [Concomitant]
  6. DEXAMETHASONE TAB [Concomitant]

REACTIONS (3)
  - ANAEMIA [None]
  - FATIGUE [None]
  - WEIGHT DECREASED [None]
